FAERS Safety Report 6740380-5 (Version None)
Quarter: 2010Q2

REPORT INFORMATION
  Report Type: 
  Country: None (occurrence: None)
  Receive Date: 20100525
  Receipt Date: 20100518
  Transmission Date: 20101027
  Serious: Yes (Other)
  Sender: FDA-Public Use
  Company Number: JP-GENZYME-THYM-1001488

PATIENT
  Sex: Male
  Weight: 65 kg

DRUGS (16)
  1. THYMOGLOBULIN [Suspect]
     Indication: APLASTIC ANAEMIA
     Dosage: 250 MG, QD
     Route: 042
     Dates: start: 20100406, end: 20100406
  2. THYMOGLOBULIN [Suspect]
     Dosage: 250 MG, QD
     Route: 042
     Dates: start: 20100408, end: 20100411
  3. CORTICOSTEROIDS [Concomitant]
     Indication: DRUG USE FOR UNKNOWN INDICATION
     Dosage: 2 MG/KG
  4. CORTICOSTEROIDS [Concomitant]
     Dosage: 3 MG/KG
  5. METHYLPREDNISOLONE SODIUM SUCCINATE [Concomitant]
     Indication: PREMEDICATION
     Dosage: 120 MG, UNK
     Route: 065
     Dates: start: 20100406, end: 20100406
  6. METHYLPREDNISOLONE SODIUM SUCCINATE [Concomitant]
     Dosage: 180 MG, UNK
     Route: 065
     Dates: start: 20100408, end: 20100411
  7. DIPHENHYDRAMINE [Concomitant]
     Indication: PREMEDICATION
     Dosage: 30 MG, UNK
     Route: 065
     Dates: start: 20100406
  8. DIPHENHYDRAMINE [Concomitant]
     Dosage: 30 MG, UNK
     Dates: start: 20100408, end: 20100411
  9. ACETAMINOPHEN [Concomitant]
     Indication: PREMEDICATION
     Dosage: 400 MG, UNK
     Route: 065
     Dates: start: 20100406, end: 20100406
  10. ACETAMINOPHEN [Concomitant]
     Dosage: 400 MG, UNK
     Dates: start: 20100408, end: 20100411
  11. LEVOFLOXACIN [Concomitant]
     Indication: PROPHYLAXIS
     Dosage: 500 MG, QD
     Route: 065
     Dates: start: 20100401, end: 20100510
  12. SULFAMETHOPRIM [Concomitant]
     Indication: PROPHYLAXIS
     Dosage: UNK
     Route: 065
     Dates: start: 20100403
  13. LANSOPRAZOLE [Concomitant]
     Indication: PROPHYLAXIS
     Dosage: 15 MG, QD
     Route: 065
     Dates: start: 20100403
  14. ACYCLOVIR SODIUM [Concomitant]
     Indication: PROPHYLAXIS
     Dosage: 200 MG, QD
     Route: 065
  15. ITRACONAZOLE [Concomitant]
     Indication: PROPHYLAXIS
     Dosage: 200 MG, QD
     Dates: start: 20100403
  16. CYCLOSPORINE [Concomitant]
     Indication: PROPHYLAXIS
     Dosage: 6 MG/KG, UNK
     Dates: start: 20100412

REACTIONS (3)
  - FIBRIN D DIMER INCREASED [None]
  - FIBRIN DEGRADATION PRODUCTS INCREASED [None]
  - PYREXIA [None]
